FAERS Safety Report 5720410-X (Version None)
Quarter: 2008Q2

REPORT INFORMATION
  Report Type: 
  Country: None (occurrence: None)
  Receive Date: 20080428
  Receipt Date: 20080401
  Transmission Date: 20081010
  Serious: No
  Sender: FDA-Public Use
  Company Number: US-BOEHRINGER INGELHEIM GMBH, GERMANY-2008-BP-05167BP

PATIENT
  Age: 34 Year
  Sex: Female

DRUGS (4)
  1. VETMEDIN [Suspect]
     Dates: start: 20080325, end: 20080325
  2. LEXAPRO [Concomitant]
  3. INSULIN [Concomitant]
     Indication: DIABETES MELLITUS
  4. MONOPRIL [Concomitant]

REACTIONS (1)
  - ACCIDENTAL EXPOSURE [None]
